FAERS Safety Report 12742833 (Version 1)
Quarter: 2016Q3

REPORT INFORMATION
  Report Type: Spontaneous
  Country: US (occurrence: US)
  Receive Date: 20160914
  Receipt Date: 20160914
  Transmission Date: 20161109
  Serious: Yes (Life-Threatening, Hospitalization, Disabling)
  Sender: FDA-Public Use
  Company Number: None

PATIENT
  Age: 61 Year
  Sex: Female
  Weight: 70.2 kg

DRUGS (3)
  1. VITAMINS [Concomitant]
     Active Substance: VITAMINS
  2. LEVOTHYROXIN [Suspect]
     Active Substance: LEVOTHYROXINE
     Indication: TRI-IODOTHYRONINE DECREASED
     Route: 048
  3. GERITOL [Concomitant]
     Active Substance: MINERALS\VITAMINS

REACTIONS (13)
  - Rash [None]
  - Swelling [None]
  - Skin burning sensation [None]
  - Local swelling [None]
  - Soft tissue injury [None]
  - Skin fissures [None]
  - Pruritus [None]
  - Peripheral swelling [None]
  - Lip operation [None]
  - Photosensitivity reaction [None]
  - Urticaria [None]
  - Nausea [None]
  - Scar [None]

NARRATIVE: CASE EVENT DATE: 20130801
